FAERS Safety Report 5114643-3 (Version None)
Quarter: 2006Q3

REPORT INFORMATION
  Report Type: 
  Country: None (occurrence: None)
  Receive Date: 20060926
  Receipt Date: 20060914
  Transmission Date: 20061208
  Serious: Yes (Death, Other)
  Sender: FDA-Public Use
  Company Number: US-JNJFOC-20050507255

PATIENT
  Sex: Female

DRUGS (3)
  1. REMICADE [Suspect]
     Indication: RHEUMATOID ARTHRITIS
     Route: 042
     Dates: start: 20030623, end: 20040410
  2. METHOTREXATE [Concomitant]
  3. CELEBREX [Concomitant]

REACTIONS (5)
  - ABNORMAL BEHAVIOUR [None]
  - BREAST DISORDER FEMALE [None]
  - MENTAL DISORDER [None]
  - RESPIRATORY FAILURE [None]
  - RESPIRATORY TRACT CARCINOMA IN SITU [None]
